FAERS Safety Report 17727265 (Version 1)
Quarter: 2020Q2

REPORT INFORMATION
  Report Type: Spontaneous
  Country: US (occurrence: US)
  Receive Date: 20200430
  Receipt Date: 20200430
  Transmission Date: 20200714
  Serious: No
  Sender: FDA-Public Use
  Company Number: US-HORIZON-PRO-0101-2020

PATIENT
  Age: 5 Year
  Sex: Female

DRUGS (4)
  1. TRICITRATES [Concomitant]
     Active Substance: CITRIC ACID MONOHYDRATE\POTASSIUM CITRATE\SODIUM CITRATE
     Dosage: 500/550/5 SOLUTION
  2. PROCYSBI [Suspect]
     Active Substance: CYSTEAMINE BITARTRATE
     Indication: CYSTINOSIS
     Dosage: 600MG (8 X 75MG CAPSULES) EVERY 12 HOURS (TOTAL DAILY DOSE IS 1200MG)
  3. PHOSPHOROUS [Concomitant]
     Dosage: 280-250MG POWDER
  4. CYSTARAN [Concomitant]
     Active Substance: CYSTEAMINE HYDROCHLORIDE
     Dosage: 0.44% DROPS

REACTIONS (2)
  - Vomiting [Not Recovered/Not Resolved]
  - Nausea [Not Recovered/Not Resolved]
